FAERS Safety Report 7766728-0 (Version None)
Quarter: 2011Q3

REPORT INFORMATION
  Report Type: 
  Country: None (occurrence: None)
  Receive Date: 20110922
  Receipt Date: 20110912
  Transmission Date: 20111222
  Serious: Yes (Hospitalization, Other)
  Sender: FDA-Public Use
  Company Number: BR-JNJFOC-20110801557

PATIENT
  Sex: Female

DRUGS (11)
  1. XARELTO [Suspect]
     Route: 048
     Dates: start: 20110701, end: 20110714
  2. CELEBREX [Concomitant]
     Indication: ANTIINFLAMMATORY THERAPY
     Dates: start: 20110625
  3. XARELTO [Suspect]
     Indication: INFECTION PROPHYLAXIS
     Route: 048
     Dates: start: 20110701, end: 20110101
  4. CIPROFLOXACIN [Suspect]
     Indication: INFECTION PROPHYLAXIS
     Dates: start: 20110701, end: 20110714
  5. XARELTO [Suspect]
     Indication: ANTICOAGULANT THERAPY
     Route: 048
     Dates: start: 20110701, end: 20110714
  6. ANALGESICS [Concomitant]
  7. FLUOXETINE [Concomitant]
     Indication: DEPRESSION
     Dates: start: 20010101
  8. LEVOTHYROXINE SODIUM [Concomitant]
     Indication: HYPOTHYROIDISM
     Dates: start: 20010101
  9. ALENDRONATE SODIUM [Concomitant]
     Indication: BONE DISORDER
     Dates: start: 19910101
  10. CALCIUM CARBONATE [Concomitant]
     Indication: BONE DISORDER
     Dates: start: 19910101
  11. XARELTO [Suspect]
     Route: 048
     Dates: start: 20110701, end: 20110101

REACTIONS (3)
  - IMPAIRED HEALING [None]
  - POST PROCEDURAL INFECTION [None]
  - POST PROCEDURAL HAEMORRHAGE [None]
